FAERS Safety Report 9937362 (Version 1)
Quarter: 2014Q1

REPORT INFORMATION
  Report Type: Spontaneous
  Country: US (occurrence: US)
  Receive Date: 20140303
  Receipt Date: 20140303
  Transmission Date: 20141002
  Serious: Yes (Death, Hospitalization)
  Sender: FDA-Public Use
  Company Number: US-MERCK-1402USA011523

PATIENT
  Age: 64 Year
  Sex: Male

DRUGS (2)
  1. NOXAFIL [Suspect]
     Dosage: 10 ML, THREE TIMES A DAY
     Route: 048
     Dates: start: 201310
  2. MYCOPHENOLATE MOFETIL [Concomitant]

REACTIONS (2)
  - Death [Fatal]
  - Pneumonia [Unknown]
